FAERS Safety Report 5772796-8 (Version None)
Quarter: 2008Q2

REPORT INFORMATION
  Report Type: 
  Country: None (occurrence: None)
  Receive Date: 20080611
  Receipt Date: 20080529
  Transmission Date: 20081010
  Serious: Yes (Hospitalization)
  Sender: FDA-Public Use
  Company Number: TRP_05743_2008

PATIENT
  Sex: Male
  Weight: 104 kg

DRUGS (8)
  1. RIBAVIRIN [Suspect]
     Indication: HEPATITIS C VIRUS
     Dosage: (1200 MG ORAL)
     Route: 048
     Dates: start: 20080214, end: 20080525
  2. PEGASYS [Suspect]
     Indication: HEPATITIS C VIRUS
     Dosage: (180 UG QD SUBCUTANEOUS)
     Route: 058
     Dates: start: 20080214, end: 20080525
  3. AGGRENOX [Concomitant]
  4. LIPITOR [Concomitant]
  5. DIOVAN HCT [Concomitant]
  6. PROTONIX [Concomitant]
  7. METFORMIN HCL [Concomitant]
  8. LANTUS [Concomitant]

REACTIONS (6)
  - ANAEMIA [None]
  - DIARRHOEA HAEMORRHAGIC [None]
  - EPISTAXIS [None]
  - MOUTH HAEMORRHAGE [None]
  - PLATELET COUNT DECREASED [None]
  - RECTAL HAEMORRHAGE [None]
